FAERS Safety Report 7938087-1 (Version None)
Quarter: 2011Q4

REPORT INFORMATION
  Report Type: 
  Country: None (occurrence: None)
  Receive Date: 20111123
  Receipt Date: 20111114
  Transmission Date: 20120403
  Serious: Yes (Other)
  Sender: FDA-Public Use
  Company Number: CN-ASTRAZENECA-2011SE68692

PATIENT
  Sex: Female

DRUGS (2)
  1. PROPOFOL [Suspect]
     Indication: ANAESTHESIA
     Dosage: 2.5-3.5 MG/KG
     Route: 042
  2. PENTAZOCINE LACTATE [Suspect]
     Indication: ANAESTHESIA
     Route: 042

REACTIONS (4)
  - DIZZINESS [None]
  - RESPIRATORY DEPRESSION [None]
  - NAUSEA [None]
  - VOMITING [None]
